FAERS Safety Report 4871973-8 (Version None)
Quarter: 2006Q1

REPORT INFORMATION
  Report Type: 
  Country: None (occurrence: None)
  Receive Date: 20060104
  Receipt Date: 20051220
  Transmission Date: 20060701
  Serious: Yes (Hospitalization)
  Sender: FDA-Public Use
  Company Number: US-ROCHE-429571

PATIENT
  Age: 47 Year
  Sex: Female
  Weight: 71.7 kg

DRUGS (10)
  1. PEG-INTERFERON A-2A (RO 25-8310) [Suspect]
     Indication: HEPATITIS C
     Route: 058
  2. PEG-INTERFERON A-2A (RO 25-8310) [Suspect]
     Dosage: RESTARTED. TAKEN EVERY WEEK.
     Route: 058
  3. RIBAVIRIN [Suspect]
     Indication: HEPATITIS C
     Route: 048
  4. RIBAVIRIN [Suspect]
     Dosage: RESTARTED.
     Route: 048
  5. PREDNISONE [Concomitant]
  6. PROGRAF [Concomitant]
  7. BACTRIM [Concomitant]
  8. RANITIDINE [Concomitant]
  9. OXAZEPAM [Concomitant]
  10. RITALIN [Concomitant]

REACTIONS (7)
  - CHEST PAIN [None]
  - CONDITION AGGRAVATED [None]
  - DEHYDRATION [None]
  - DIARRHOEA [None]
  - DIZZINESS [None]
  - NAUSEA [None]
  - VOMITING [None]
